FAERS Safety Report 8714096 (Version 2)
Quarter: 2012Q4

REPORT INFORMATION
  Report Type: Spontaneous
  Country: JP (occurrence: None)
  Receive Date: 20120724
  Receipt Date: 20120815
  Transmission Date: 20130627
  Serious: Yes (Death)
  Sender: FDA-Public Use
  Company Number: ADR-2012-01319

PATIENT
  Age: 73 Year
  Sex: Female

DRUGS (1)
  1. BACLOFEN [Suspect]
     Indication: CEREBRAL HAEMORRHAGE
     Dosage: 50MCG/DAY

REACTIONS (8)
  - Cerebellar infarction [None]
  - Coma [None]
  - Condition aggravated [None]
  - Musculoskeletal stiffness [None]
  - Bradycardia [None]
  - Blood pressure decreased [None]
  - Depressed level of consciousness [None]
  - Paralysis flaccid [None]
